FAERS Safety Report 6100859-6 (Version None)
Quarter: 2009Q1

REPORT INFORMATION
  Report Type: 
  Country: None (occurrence: None)
  Receive Date: 20090223
  Receipt Date: 20090212
  Transmission Date: 20090719
  Serious: Yes (Other)
  Sender: FDA-Public Use
  Company Number: CHPA2009US04224

PATIENT
  Age: 25 Year
  Sex: Female
  Weight: 77.1 kg

DRUGS (3)
  1. THERAFLU NIGHTTIME SEVERE COLD WARMING SYRUP (NCH)(PARACETAMOL, DIPHEN [Suspect]
     Indication: COUGH
     Dosage: 2 TSP, QHS, ORAL
     Route: 048
     Dates: start: 20090209, end: 20090212
  2. THERAFLU NIGHTTIME SEVERE COLD WARMING SYRUP (NCH)(PARACETAMOL, DIPHEN [Suspect]
     Indication: NASOPHARYNGITIS
     Dosage: 2 TSP, QHS, ORAL
     Route: 048
     Dates: start: 20090209, end: 20090212
  3. THERAFLU FLU AND CHEST CONGESTION WITHOUT PSE (NCH)(GUAIFENESIN, PARAC [Suspect]
     Indication: COUGH
     Dosage: 1 DF, QD, ORAL
     Route: 048
     Dates: start: 20090209, end: 20090212

REACTIONS (1)
  - HALLUCINATION [None]
